FAERS Safety Report 24180059 (Version 2)
Quarter: 2025Q3

REPORT INFORMATION
  Report Type: Report from Study
  Country: JP (occurrence: JP)
  Receive Date: 20240806
  Receipt Date: 20250801
  Transmission Date: 20251020
  Serious: Yes (Other)
  Sender: OTSUKA
  Company Number: JP-OTSUKA-2024_021038

PATIENT
  Sex: Female
  Weight: 48 kg

DRUGS (13)
  1. TOLVAPTAN [Suspect]
     Active Substance: TOLVAPTAN
     Indication: Cardiac failure
     Dosage: 8 MG/DAY, ONCE DAILY
     Route: 041
     Dates: start: 20230829, end: 20230829
  2. TOLVAPTAN [Suspect]
     Active Substance: TOLVAPTAN
     Indication: Fluid retention
     Dosage: 16 MG/DAY, ONCE DAILY
     Route: 041
     Dates: start: 20230830, end: 20230831
  3. TOLVAPTAN [Concomitant]
     Active Substance: TOLVAPTAN
     Indication: Diuretic therapy
     Dosage: 3.75 MG/DAY
     Route: 048
     Dates: start: 20230828, end: 20230913
  4. TOLVAPTAN [Concomitant]
     Active Substance: TOLVAPTAN
     Dosage: 7.5 MG/DAY
     Route: 048
     Dates: start: 20230901
  5. FUROSEMIDE [Concomitant]
     Active Substance: FUROSEMIDE
     Indication: Diuretic therapy
     Dosage: 20 MG/DAY
     Route: 050
     Dates: start: 20230825, end: 20230904
  6. EDOXABAN TOSYLATE [Concomitant]
     Active Substance: EDOXABAN TOSYLATE
     Indication: Product used for unknown indication
     Route: 048
  7. FEBUXOSTAT [Concomitant]
     Active Substance: FEBUXOSTAT
     Indication: Product used for unknown indication
     Route: 048
  8. LINAGLIPTIN [Concomitant]
     Active Substance: LINAGLIPTIN
     Indication: Product used for unknown indication
     Route: 048
  9. BISOPROLOL [Concomitant]
     Active Substance: BISOPROLOL
     Indication: Product used for unknown indication
     Route: 062
     Dates: start: 20230826, end: 20230906
  10. VONOPRAZAN FUMARATE [Concomitant]
     Active Substance: VONOPRAZAN FUMARATE
     Indication: Prophylaxis
     Route: 048
  11. SOLDEM 3A [Concomitant]
     Active Substance: CARBOHYDRATES\POTASSIUM CHLORIDE\SODIUM CHLORIDE\SODIUM LACTATE
     Indication: Cardiac failure
     Route: 050
     Dates: start: 20230825, end: 20230904
  12. CYANOCOBALAMIN\PYRIDOXINE HYDROCHLORIDE\THIAMINE [Concomitant]
     Active Substance: CYANOCOBALAMIN\PYRIDOXINE HYDROCHLORIDE\THIAMINE
     Indication: Prophylaxis
     Route: 050
     Dates: start: 20230825, end: 20230904
  13. METOCLOPRAMIDE HYDROCHLORIDE [Concomitant]
     Active Substance: METOCLOPRAMIDE HYDROCHLORIDE
     Indication: Prophylaxis
     Route: 050
     Dates: start: 20230827, end: 20230829

REACTIONS (3)
  - Blood potassium decreased [Unknown]
  - Blood sodium increased [Unknown]
  - Drug monitoring procedure incorrectly performed [Unknown]

NARRATIVE: CASE EVENT DATE: 20230829
